FAERS Safety Report 19856807 (Version 1)
Quarter: 2021Q3

REPORT INFORMATION
  Report Type: Spontaneous
  Country: US (occurrence: US)
  Receive Date: 20210920
  Receipt Date: 20210920
  Transmission Date: 20211014
  Serious: No
  Sender: FDA-Public Use
  Company Number: US-BAUSCH-BL-2021-028025

PATIENT
  Sex: Female

DRUGS (1)
  1. LUMIFY [Suspect]
     Active Substance: BRIMONIDINE TARTRATE
     Indication: OCULAR HYPERAEMIA
     Dosage: USED THE PRODUCT ONLY ONE TIME, ONE DROP IN BOTH EYES
     Route: 047
     Dates: start: 202107, end: 202107

REACTIONS (2)
  - Eyelid disorder [Recovered/Resolved]
  - Madarosis [Unknown]

NARRATIVE: CASE EVENT DATE: 202107
